FAERS Safety Report 23571262 (Version 1)
Quarter: 2024Q1

REPORT INFORMATION
  Report Type: Spontaneous
  Country: DE (occurrence: DE)
  Receive Date: 20240227
  Receipt Date: 20240227
  Transmission Date: 20240410
  Serious: Yes (Hospitalization)
  Sender: FDA-Public Use
  Company Number: None

PATIENT
  Age: 37 Year
  Sex: Female
  Weight: 69 kg

DRUGS (1)
  1. COSENTYX [Suspect]
     Active Substance: SECUKINUMAB
     Indication: Product used for unknown indication
     Dosage: 300 UNK
     Route: 058
     Dates: start: 20231020, end: 20231124

REACTIONS (8)
  - Splenomegaly [Recovering/Resolving]
  - Colitis ulcerative [Recovering/Resolving]
  - Abnormal faeces [Recovering/Resolving]
  - Abnormal loss of weight [Recovering/Resolving]
  - Brachial pulse increased [Recovering/Resolving]
  - General physical health deterioration [Recovering/Resolving]
  - Hepatomegaly [Recovering/Resolving]
  - Malnutrition [Recovering/Resolving]

NARRATIVE: CASE EVENT DATE: 20231117
